FAERS Safety Report 17570835 (Version 1)
Quarter: 2020Q1

REPORT INFORMATION
  Report Type: Spontaneous
  Country: CN (occurrence: CN)
  Receive Date: 20200323
  Receipt Date: 20200323
  Transmission Date: 20200409
  Serious: Yes (Other)
  Sender: FDA-Public Use
  Company Number: CN-BAYER-2020-045163

PATIENT
  Age: 77 Year
  Sex: Female

DRUGS (2)
  1. ARBIDOL [Concomitant]
     Active Substance: UMIFENOVIR
     Dosage: UNK
     Dates: start: 20200214, end: 20200226
  2. AVELOX [Suspect]
     Active Substance: MOXIFLOXACIN HYDROCHLORIDE
     Indication: PNEUMONIA VIRAL
     Dosage: 400 MG, QD
     Route: 041
     Dates: start: 20200214, end: 20200214

REACTIONS (11)
  - Renal failure [None]
  - Tachypnoea [Recovering/Resolving]
  - Abdominal discomfort [Recovered/Resolved]
  - Cough [Recovered/Resolved]
  - Product use in unapproved indication [None]
  - Off label use [None]
  - Respiratory failure [Recovered/Resolved]
  - Chest discomfort [Recovered/Resolved]
  - Pleural effusion [None]
  - Inflammation [None]
  - Jaundice [None]

NARRATIVE: CASE EVENT DATE: 202002
